FAERS Safety Report 15906463 (Version 1)
Quarter: 2019Q1

REPORT INFORMATION
  Report Type: Spontaneous
  Country: US (occurrence: US)
  Receive Date: 20190203
  Receipt Date: 20190203
  Transmission Date: 20190417
  Serious: Yes (Disabling, Other)
  Sender: FDA-Public Use
  Company Number: None

PATIENT
  Age: 49 Year
  Sex: Male
  Weight: 157.5 kg

DRUGS (23)
  1. GABAPENTIN. [Concomitant]
     Active Substance: GABAPENTIN
  2. ZYRTEC [Concomitant]
     Active Substance: CETIRIZINE HYDROCHLORIDE
  3. MAGNESIUM [Concomitant]
     Active Substance: MAGNESIUM
  4. IRON [Concomitant]
     Active Substance: IRON
  5. VITAMIN C [Concomitant]
     Active Substance: ASCORBIC ACID
  6. NEXIUM [Suspect]
     Active Substance: ESOMEPRAZOLE MAGNESIUM
     Indication: PROPHYLAXIS
     Dosage: ?          QUANTITY:1 CAPSULE(S);?
     Route: 048
     Dates: start: 20180101, end: 20190203
  7. CRESTOR [Concomitant]
     Active Substance: ROSUVASTATIN CALCIUM
  8. SYNTHROID [Concomitant]
     Active Substance: LEVOTHYROXINE SODIUM
  9. TIZANIDINE. [Concomitant]
     Active Substance: TIZANIDINE
  10. OMPRESOLE [Concomitant]
  11. FLONASE [Concomitant]
     Active Substance: FLUTICASONE PROPIONATE
  12. VITAMIN D3 [Concomitant]
     Active Substance: CHOLECALCIFEROL
  13. CELEBREX [Concomitant]
     Active Substance: CELECOXIB
  14. PROPRANOLOL [Concomitant]
     Active Substance: PROPRANOLOL HYDROCHLORIDE
  15. CALCIUM [Concomitant]
     Active Substance: CALCIUM
  16. LOSARTAN POTASSIUM. [Concomitant]
     Active Substance: LOSARTAN POTASSIUM
  17. LUNESTA [Concomitant]
     Active Substance: ESZOPICLONE
  18. WALZER [Concomitant]
  19. HYDROXPAN [Concomitant]
  20. MULTIVITAMINS [Concomitant]
     Active Substance: VITAMINS
  21. PROBIOTICS [Concomitant]
     Active Substance: PROBIOTICS NOS
  22. PRAZOSIN. [Concomitant]
     Active Substance: PRAZOSIN
  23. ZINC. [Concomitant]
     Active Substance: ZINC

REACTIONS (5)
  - Nephropathy [None]
  - Magnesium deficiency [None]
  - Calcium deficiency [None]
  - Clostridium difficile infection [None]
  - Abdominal pain upper [None]

NARRATIVE: CASE EVENT DATE: 20190114
